FAERS Safety Report 8828855 (Version 1)
Quarter: 2012Q4

REPORT INFORMATION
  Report Type: 
  Country: US (occurrence: US)
  Receive Date: 20121008
  Receipt Date: 20121008
  Transmission Date: 20130627
  Serious: Yes (Death, Other)
  Sender: FDA-Public Use
  Company Number: US-ASTRAZENECA-2012SE76494

PATIENT
  Age: 85 Year
  Sex: Male

DRUGS (1)
  1. CRESTOR [Suspect]
     Route: 048

REACTIONS (5)
  - Death [Fatal]
  - Sepsis [Unknown]
  - Cerebrovascular accident [Unknown]
  - Abasia [Unknown]
  - Aphasia [Unknown]
